FAERS Safety Report 8244638-2 (Version None)
Quarter: 2012Q1

REPORT INFORMATION
  Report Type: 
  Country: None (occurrence: None)
  Receive Date: 20120329
  Receipt Date: 20111128
  Transmission Date: 20120608
  Serious: No
  Sender: FDA-Public Use
  Company Number: US-MYLANLABS-2011S1024445

PATIENT
  Age: 58 Year
  Sex: Female

DRUGS (2)
  1. FENTANYL-100 [Suspect]
     Dosage: CHANGE Q72HR
     Route: 062
     Dates: start: 20111115
  2. FENTANYL-100 [Suspect]
     Indication: PAIN
     Dosage: CHANGE Q72HR
     Route: 062
     Dates: start: 20111115, end: 20111115

REACTIONS (6)
  - HOT FLUSH [None]
  - DIARRHOEA [None]
  - ERYTHEMA [None]
  - DRUG WITHDRAWAL SYNDROME [None]
  - INTENTIONAL DRUG MISUSE [None]
  - TACHYCARDIA [None]
